FAERS Safety Report 7717941-X (Version None)
Quarter: 2011Q3

REPORT INFORMATION
  Report Type: 
  Country: None (occurrence: None)
  Receive Date: 20110830
  Receipt Date: 20110822
  Transmission Date: 20111222
  Serious: Yes (Hospitalization)
  Sender: FDA-Public Use
  Company Number: GR-JNJFOC-20110809510

PATIENT
  Sex: Male

DRUGS (3)
  1. LONALGAL [Concomitant]
     Route: 065
  2. DURAGESIC-100 [Suspect]
     Indication: CANCER PAIN
     Route: 062
  3. DURAGESIC-100 [Suspect]
     Route: 062

REACTIONS (1)
  - AGGRESSION [None]
